FAERS Safety Report 9772232 (Version 2)
Quarter: 2014Q1

REPORT INFORMATION
  Report Type: Report from Study
  Country: US (occurrence: US)
  Receive Date: 20131219
  Receipt Date: 20140214
  Transmission Date: 20141002
  Serious: Yes (Other)
  Sender: FDA-Public Use
  Company Number: US-MYLANLABS-2013S1027958

PATIENT
  Age: 29 Year
  Sex: Female

DRUGS (4)
  1. AMNESTEEM CAPSULES [Suspect]
     Dates: start: 20130905
  2. AMNESTEEM CAPSULES [Suspect]
     Dates: end: 20131211
  3. ABSORICA [Suspect]
     Dates: start: 2013
  4. VITAMINS [Concomitant]

REACTIONS (2)
  - Exposure during pregnancy [Recovered/Resolved]
  - Abortion induced [Recovered/Resolved]
